FAERS Safety Report 4428774-4 (Version None)
Quarter: 2004Q3

REPORT INFORMATION
  Report Type: 
  Country: None (occurrence: None)
  Receive Date: 20040818
  Receipt Date: 20040525
  Transmission Date: 20050211
  Serious: No
  Sender: FDA-Public Use
  Company Number: US-BRISTOL-MYERS SQUIBB COMPANY-12596474

PATIENT
  Age: 36 Year
  Sex: Female
  Weight: 91 kg

DRUGS (1)
  1. TEQUIN [Suspect]
     Indication: PNEUMONIA
     Dates: start: 20040522, end: 20050525

REACTIONS (2)
  - DIARRHOEA [None]
  - NAUSEA [None]
